FAERS Safety Report 13572307 (Version 1)
Quarter: 2017Q2

REPORT INFORMATION
  Report Type: Spontaneous
  Country: FR (occurrence: FR)
  Receive Date: 20170523
  Receipt Date: 20170523
  Transmission Date: 20170830
  Serious: Yes (Death, Hospitalization)
  Sender: FDA-Public Use
  Company Number: FR-AUROBINDO-AUR-APL-2017-34562

PATIENT
  Age: 71 Year
  Sex: Male

DRUGS (4)
  1. TACROLIMUS. [Suspect]
     Active Substance: TACROLIMUS
     Indication: IMMUNOSUPPRESSANT DRUG THERAPY
     Dosage: 10 MG, TWO TIMES A DAY
     Route: 065
  2. PREDNISONE. [Suspect]
     Active Substance: PREDNISONE
     Indication: IMMUNOSUPPRESSANT DRUG THERAPY
     Dosage: 10 MG, DAILY
     Route: 065
  3. PREDNISONE. [Suspect]
     Active Substance: PREDNISONE
     Dosage: 5 MG, DAILY
     Route: 065
  4. MYCOPHENOLATE [Suspect]
     Active Substance: MYCOPHENOLIC ACID
     Indication: IMMUNOSUPPRESSANT DRUG THERAPY
     Dosage: 500 MG, TWO TIMES A DAY
     Route: 065

REACTIONS (11)
  - Bacterial sepsis [Fatal]
  - Anaemia [Unknown]
  - Skin lesion [Unknown]
  - Septic shock [Fatal]
  - Urinary tract infection [Unknown]
  - Pyrexia [Unknown]
  - Ulcer [Unknown]
  - Swelling [Unknown]
  - Fungal infection [Fatal]
  - Cellulitis [Unknown]
  - Haematoma [Unknown]

NARRATIVE: CASE EVENT DATE: 201304
